FAERS Safety Report 14954703 (Version 1)
Quarter: 2018Q2

REPORT INFORMATION
  Report Type: Spontaneous
  Country: US (occurrence: US)
  Receive Date: 20180530
  Receipt Date: 20180530
  Transmission Date: 20180711
  Serious: Yes (Death, Other)
  Sender: FDA-Public Use
  Company Number: US-MALLINCKRODT-T201801852

PATIENT

DRUGS (1)
  1. UVADEX [Suspect]
     Active Substance: METHOXSALEN
     Indication: OBLITERATIVE BRONCHIOLITIS
     Dosage: 0.35 ?G PER ML OF COLLECTED BUFFY COAT
     Route: 057

REACTIONS (3)
  - Chronic respiratory failure [Unknown]
  - Product use in unapproved indication [Unknown]
  - Respiratory tract infection [Fatal]
